FAERS Safety Report 8104361 (Version 6)
Quarter: 2013Q4

REPORT INFORMATION
  Report Type: Spontaneous
  Country: US (occurrence: US)
  Receive Date: 20110824
  Receipt Date: 20131127
  Transmission Date: 20140711
  Serious: Yes (Hospitalization)
  Sender: FDA-Public Use
  Company Number: US-GLAXOSMITHKLINE-A0915668A

PATIENT
  Age: 76 Year
  Sex: Female
  Weight: 86.4 kg

DRUGS (1)
  1. AVANDIA [Suspect]
     Indication: DIABETES MELLITUS
     Dosage: 8MG PER DAY
     Route: 048
     Dates: start: 200410, end: 201005

REACTIONS (4)
  - Transient ischaemic attack [Not Recovered/Not Resolved]
  - Renal failure chronic [Unknown]
  - Cardiac failure congestive [Unknown]
  - Endarterectomy [Unknown]
